FAERS Safety Report 25323896 (Version 1)
Quarter: 2025Q2

REPORT INFORMATION
  Report Type: Spontaneous
  Country: US (occurrence: None)
  Receive Date: 20250515
  Receipt Date: 20250515
  Transmission Date: 20250716
  Serious: Yes (Death)
  Sender: FDA-CTU
  Company Number: None

PATIENT
  Age: 74 Year
  Sex: Male
  Weight: 74.8 kg

DRUGS (6)
  1. CREXONT [Suspect]
     Active Substance: CARBIDOPA\LEVODOPA
     Indication: Parkinson^s disease
     Dosage: 1 DF DOSAGE FORM TWICE A DAY ORAL
     Route: 048
     Dates: start: 20250423
  2. CREXONT [Suspect]
     Active Substance: CARBIDOPA\LEVODOPA
     Indication: Parkinson^s disease
     Dosage: FREQUENCY : 4 TIMES A DAY;?
     Route: 048
     Dates: start: 20250423
  3. Citalopram 20 mg daily [Concomitant]
  4. Meloxicam 15 mg daily [Concomitant]
  5. Midodrine 5 mg twice daily [Concomitant]
  6. Selegiline 5 mg twice daily [Concomitant]

REACTIONS (3)
  - Mood altered [None]
  - Depressive symptom [None]
  - Completed suicide [None]

NARRATIVE: CASE EVENT DATE: 20250511
